FAERS Safety Report 4878667-3 (Version None)
Quarter: 2006Q1

REPORT INFORMATION
  Report Type: 
  Country: None (occurrence: None)
  Receive Date: 20060110
  Receipt Date: 20051227
  Transmission Date: 20060701
  Serious: Yes (Death, Hospitalization)
  Sender: FDA-Public Use
  Company Number: 219451

PATIENT
  Age: 73 Year
  Sex: Female

DRUGS (11)
  1. AVASTIN [Suspect]
     Indication: PANCREATIC CARCINOMA
     Dosage: 5 MG/KG, Q2W, INTRAVENOUS
     Route: 042
     Dates: start: 20050906, end: 20050921
  2. CAPECITABINE(CAPECITABINE) [Suspect]
     Indication: PANCREATIC CARCINOMA
     Dosage: 825 MG/M2, ORAL
     Route: 048
     Dates: start: 20050906, end: 20050921
  3. RADIOTHERAPY(RADIATION THERAPY) [Suspect]
     Indication: PANCREATIC CARCINOMA
     Dosage: 1.8 GY, QD
     Dates: start: 20050906, end: 20050926
  4. NARCOTICS NOS (NARCOTIC NOS) [Concomitant]
  5. ACETAMINOPHEN [Concomitant]
  6. PRILOSEC [Concomitant]
  7. COMPAZINE [Concomitant]
  8. CELEXA [Concomitant]
  9. IBUPROFEN [Concomitant]
  10. PROTONIX [Concomitant]
  11. REGLAN [Concomitant]

REACTIONS (11)
  - CONFUSIONAL STATE [None]
  - DYSPNOEA [None]
  - FAT NECROSIS [None]
  - HAEMATOCHEZIA [None]
  - IATROGENIC INJURY [None]
  - INTRA-ABDOMINAL HAEMORRHAGE [None]
  - PANCREATITIS [None]
  - PERFORATION BILE DUCT [None]
  - POST PROCEDURAL COMPLICATION [None]
  - SMALL INTESTINAL HAEMORRHAGE [None]
  - SYNCOPE [None]
